FAERS Safety Report 6015621-2 (Version None)
Quarter: 2008Q4

REPORT INFORMATION
  Report Type: 
  Country: None (occurrence: None)
  Receive Date: 20081219
  Receipt Date: 20081219
  Transmission Date: 20090506
  Serious: Yes (Life-Threatening)
  Sender: FDA-Public Use
  Company Number: None

PATIENT
  Sex: Male
  Weight: 90.7194 kg

DRUGS (2)
  1. RISPERDAL [Suspect]
     Indication: SCHIZOPHRENIA, PARANOID TYPE
     Dosage: 6 MG'S DAILY PO (DURATION: A FEW MONTHS)
     Route: 048
  2. RISPERDAL [Suspect]
     Indication: SCHIZOPHRENIA, PARANOID TYPE
     Dosage: 3 MG'S DAILY  PO
     Route: 048

REACTIONS (3)
  - DRUG TOXICITY [None]
  - IMMUNE SYSTEM DISORDER [None]
  - LIP AND/OR ORAL CAVITY CANCER [None]
